FAERS Safety Report 7036798-6 (Version None)
Quarter: 2010Q4

REPORT INFORMATION
  Report Type: 
  Country: None (occurrence: None)
  Receive Date: 20101011
  Receipt Date: 20100324
  Transmission Date: 20110411
  Serious: Yes (Other)
  Sender: FDA-Public Use
  Company Number: US-BAYER-200937446NA

PATIENT
  Age: 25 Year
  Sex: Female
  Weight: 64 kg

DRUGS (7)
  1. YAZ [Suspect]
     Indication: CONTRACEPTION
     Route: 048
     Dates: start: 20060101, end: 20081201
  2. ALBUTEROL [Concomitant]
     Indication: PRODUCT USED FOR UNKNOWN INDICATION
     Route: 065
  3. SINGULAIR [Concomitant]
     Indication: PRODUCT USED FOR UNKNOWN INDICATION
     Route: 065
  4. ZYRTEC [Concomitant]
     Indication: PRODUCT USED FOR UNKNOWN INDICATION
     Route: 065
  5. PRAVACHOL [Concomitant]
     Indication: PRODUCT USED FOR UNKNOWN INDICATION
     Route: 065
  6. UNKNOWN DRUG [Concomitant]
     Indication: CONTRACEPTION
     Route: 065
  7. PERCOCET [Concomitant]
     Indication: PRODUCT USED FOR UNKNOWN INDICATION
     Route: 065

REACTIONS (6)
  - ABDOMINAL PAIN [None]
  - ABDOMINAL TENDERNESS [None]
  - BILIARY DYSKINESIA [None]
  - FAECES DISCOLOURED [None]
  - NAUSEA [None]
  - VOMITING [None]
